FAERS Safety Report 21062073 (Version 11)
Quarter: 2024Q1

REPORT INFORMATION
  Report Type: Spontaneous
  Country: JP (occurrence: JP)
  Receive Date: 20220710
  Receipt Date: 20240307
  Transmission Date: 20240410
  Serious: Yes (Death, Hospitalization, Other)
  Sender: FDA-Public Use
  Company Number: JP-BRISTOL-MYERS SQUIBB COMPANY-2022-070388

PATIENT
  Age: 80 Year
  Sex: Male
  Weight: 52.2 kg

DRUGS (29)
  1. YERVOY [Suspect]
     Active Substance: IPILIMUMAB
     Indication: Non-small cell lung cancer recurrent
     Route: 041
     Dates: start: 20211207, end: 20211207
  2. YERVOY [Suspect]
     Active Substance: IPILIMUMAB
  3. YERVOY [Suspect]
     Active Substance: IPILIMUMAB
  4. YERVOY [Suspect]
     Active Substance: IPILIMUMAB
  5. YERVOY [Suspect]
     Active Substance: IPILIMUMAB
  6. OPDIVO [Suspect]
     Active Substance: NIVOLUMAB
     Indication: Non-small cell lung cancer recurrent
     Route: 041
     Dates: start: 20211207, end: 20211207
  7. OPDIVO [Suspect]
     Active Substance: NIVOLUMAB
  8. OPDIVO [Suspect]
     Active Substance: NIVOLUMAB
  9. CARBOPLATIN [Suspect]
     Active Substance: CARBOPLATIN
     Indication: Non-small cell lung cancer recurrent
     Route: 041
     Dates: start: 20211207, end: 20211207
  10. CARBOPLATIN [Suspect]
     Active Substance: CARBOPLATIN
  11. CARBOPLATIN [Suspect]
     Active Substance: CARBOPLATIN
  12. PEMETREXED [Suspect]
     Active Substance: PEMETREXED
     Indication: Non-small cell lung cancer recurrent
     Dates: start: 20211207, end: 20211207
  13. ANAMORELIN HYDROCHLORIDE [Suspect]
     Active Substance: ANAMORELIN HYDROCHLORIDE
     Indication: Cachexia
     Route: 048
     Dates: start: 20211127, end: 20211214
  14. ANAMORELIN HYDROCHLORIDE [Suspect]
     Active Substance: ANAMORELIN HYDROCHLORIDE
  15. ANAMORELIN HYDROCHLORIDE [Suspect]
     Active Substance: ANAMORELIN HYDROCHLORIDE
  16. EMEND [Suspect]
     Active Substance: APREPITANT
     Indication: Prophylaxis of nausea and vomiting
     Route: 048
     Dates: start: 20211207, end: 20211207
  17. EMEND [Suspect]
     Active Substance: APREPITANT
     Route: 048
     Dates: start: 20211208, end: 20211209
  18. OPALMON [Suspect]
     Active Substance: LIMAPROST
     Indication: Lumbar spinal stenosis
     Dosage: 5 ?G, Q8H
     Route: 048
     Dates: end: 20211214
  19. NAPROXEN [Suspect]
     Active Substance: NAPROXEN
     Indication: Pyrexia
     Route: 048
     Dates: start: 20211213
  20. ALIMTA [Concomitant]
     Active Substance: PEMETREXED DISODIUM
     Indication: Non-small cell lung cancer recurrent
     Route: 041
     Dates: start: 20211207, end: 20211207
  21. CLOPIDOGREL [Concomitant]
     Active Substance: CLOPIDOGREL BISULFATE
     Indication: Lacunar infarction
     Route: 048
     Dates: end: 20211214
  22. CLOPIDOGREL [Concomitant]
     Active Substance: CLOPIDOGREL BISULFATE
  23. CLOPIDOGREL [Concomitant]
     Active Substance: CLOPIDOGREL BISULFATE
  24. CLOPIDOGREL [Concomitant]
     Active Substance: CLOPIDOGREL BISULFATE
  25. ROSUVASTATIN [Concomitant]
     Active Substance: ROSUVASTATIN
     Indication: Dyslipidaemia
     Route: 048
     Dates: end: 20211214
  26. LIMAPROST [Concomitant]
     Active Substance: LIMAPROST
     Indication: Lacunar infarction
     Dosage: 3 DOSES
     Route: 048
     Dates: end: 20211214
  27. VITAMINS NOS [Concomitant]
     Active Substance: VITAMINS
     Indication: Prophylaxis
     Dosage: POWDER, METERED
     Route: 048
     Dates: start: 20211127, end: 20211214
  28. PREGABALIN [Concomitant]
     Active Substance: PREGABALIN
     Indication: Product used for unknown indication
     Route: 048
  29. METHYLCOBALAMIN [Concomitant]
     Active Substance: METHYLCOBALAMIN
     Indication: Product used for unknown indication
     Route: 048

REACTIONS (8)
  - Cytokine release syndrome [Fatal]
  - Hiccups [Recovering/Resolving]
  - Non-small cell lung cancer [Unknown]
  - Erythema [Unknown]
  - Pruritus [Unknown]
  - Lymphangiosis carcinomatosa [Unknown]
  - Pleural effusion [Unknown]
  - Blood creatinine increased [Unknown]

NARRATIVE: CASE EVENT DATE: 20211209
